FAERS Safety Report 5470123-7 (Version None)
Quarter: 2007Q3

REPORT INFORMATION
  Report Type: 
  Country: None (occurrence: None)
  Receive Date: 20070927
  Receipt Date: 20070917
  Transmission Date: 20080115
  Serious: Yes (Death)
  Sender: FDA-Public Use
  Company Number: SE-PFIZER INC-2007077612

PATIENT
  Age: 58 Year
  Sex: Male

DRUGS (8)
  1. LYRICA [Suspect]
     Indication: POLYNEUROPATHY
     Route: 048
  2. ENALAPRIL MALEATE [Suspect]
     Indication: HYPERTENSION
     Dosage: DAILY DOSE:20MG-FREQ:EVERYDAY
     Route: 048
  3. AMITRIPTYLINE HCL [Suspect]
     Indication: POLYNEUROPATHY
     Route: 048
  4. METFORMIN [Suspect]
     Indication: DIABETES MELLITUS
     Dosage: DAILY DOSE:3GRAM-FREQ:EVERYDAY
     Route: 048
  5. INSULATARD [Concomitant]
  6. BENDROFLUMETHIAZIDE [Concomitant]
     Route: 048
  7. NICOTINAMIDE [Concomitant]
     Route: 048
  8. GLYBURIDE [Concomitant]
     Route: 048

REACTIONS (2)
  - LACTIC ACIDOSIS [None]
  - RENAL FAILURE [None]
